FAERS Safety Report 24110601 (Version 1)
Quarter: 2024Q3

REPORT INFORMATION
  Report Type: Spontaneous
  Country: EG (occurrence: EG)
  Receive Date: 20240718
  Receipt Date: 20240718
  Transmission Date: 20241017
  Serious: Yes (Hospitalization)
  Sender: BAXTER
  Company Number: EG-BAXTER-2024BAX021588

PATIENT
  Age: 8 Year
  Sex: Male
  Weight: 22 kg

DRUGS (3)
  1. CYCLOPHOSPHAMIDE [Suspect]
     Active Substance: CYCLOPHOSPHAMIDE
     Indication: Acute lymphocytic leukaemia
     Dosage: 255 MG
     Route: 042
     Dates: start: 20240427
  2. MESNA [Suspect]
     Active Substance: MESNA
     Indication: Toxicity to various agents
     Dosage: 225 MG, DOSAGE FORM: INJECTION
     Route: 042
     Dates: start: 20240427
  3. CYTARABINE [Concomitant]
     Active Substance: CYTARABINE
     Indication: Acute lymphocytic leukaemia
     Dosage: 225 MG
     Route: 042
     Dates: start: 20240427

REACTIONS (1)
  - Blood urine present [Recovered/Resolved]

NARRATIVE: CASE EVENT DATE: 20240427
